FAERS Safety Report 10731064 (Version 2)
Quarter: 2015Q1

REPORT INFORMATION
  Report Type: Spontaneous
  Country: US (occurrence: US)
  Receive Date: 20150122
  Receipt Date: 20150305
  Transmission Date: 20150721
  Serious: Yes (Death, Hospitalization)
  Sender: FDA-Public Use
  Company Number: US-JNJFOC-20150114145

PATIENT
  Age: 84 Year
  Sex: Female

DRUGS (1)
  1. IMBRUVICA [Suspect]
     Active Substance: IBRUTINIB
     Indication: MANTLE CELL LYMPHOMA
     Route: 048
     Dates: start: 20140205, end: 2014

REACTIONS (6)
  - Asthenia [Unknown]
  - Cardiac disorder [Not Recovered/Not Resolved]
  - Diarrhoea [Unknown]
  - Vomiting [Unknown]
  - White blood cell count increased [Unknown]
  - Pulmonary embolism [Fatal]

NARRATIVE: CASE EVENT DATE: 2014
